FAERS Safety Report 5490130-8 (Version None)
Quarter: 2007Q4

REPORT INFORMATION
  Report Type: 
  Country: None (occurrence: None)
  Receive Date: 20071016
  Receipt Date: 20071004
  Transmission Date: 20080405
  Serious: Yes (Hospitalization)
  Sender: FDA-Public Use
  Company Number: 2005US000814

PATIENT
  Age: 49 Year
  Sex: Male

DRUGS (12)
  1. PROGRAF [Suspect]
     Indication: PROPHYLAXIS AGAINST TRANSPLANT REJECTION
     Dosage: 3 MG, BID, ORAL
     Route: 048
     Dates: start: 20050602
  2. MYCOPHENOLATE MOFETIL [Suspect]
     Indication: PROPHYLAXIS AGAINST TRANSPLANT REJECTION
     Dosage: 1000 MG, BID, ORAL
     Route: 048
     Dates: start: 20050601
  3. PREDNISONE TAB [Suspect]
     Indication: PROPHYLAXIS AGAINST TRANSPLANT REJECTION
     Dosage: 30.00 MG, ORAL
     Route: 048
     Dates: start: 20050605
  4. DOCUSATE SODIUM (DOCUSATE SODIUM) [Concomitant]
  5. NYSTATIN [Concomitant]
  6. PANTOPRAZOLE SODIUM [Concomitant]
  7. MVI (VITAMINS NOS) [Concomitant]
  8. CEFAZOLIN [Concomitant]
  9. CALCIUM CARBONATE [Concomitant]
  10. MAGNESIUM OXIDE (MAGNESIUM OXIDE) [Concomitant]
  11. FERROUS SULFATE TAB [Concomitant]
  12. METOPROLOL TARTRATE [Concomitant]

REACTIONS (7)
  - COMPLICATIONS OF TRANSPLANTED KIDNEY [None]
  - OEDEMA MUCOSAL [None]
  - PERINEPHRIC COLLECTION [None]
  - RENAL HAEMATOMA [None]
  - RENAL TUBULAR NECROSIS [None]
  - URETERIC OBSTRUCTION [None]
  - URINARY ANASTOMOTIC LEAK [None]
